FAERS Safety Report 7424282-7 (Version None)
Quarter: 2011Q2

REPORT INFORMATION
  Report Type: 
  Country: None (occurrence: None)
  Receive Date: 20110419
  Receipt Date: 20110412
  Transmission Date: 20111010
  Serious: Yes (Hospitalization)
  Sender: FDA-Public Use
  Company Number: US-BRISTOL-MYERS SQUIBB COMPANY-15668429

PATIENT
  Age: 46 Year
  Sex: Female

DRUGS (1)
  1. ERBITUX [Suspect]

REACTIONS (3)
  - RASH [None]
  - COLITIS [None]
  - BLISTER [None]
